FAERS Safety Report 6936751-4 (Version None)
Quarter: 2010Q3

REPORT INFORMATION
  Report Type: 
  Country: None (occurrence: None)
  Receive Date: 20100818
  Receipt Date: 20100804
  Transmission Date: 20110219
  Serious: Yes (Other)
  Sender: FDA-Public Use
  Company Number: US-1182876

PATIENT
  Age: 53 Year
  Sex: Female
  Weight: 47.6277 kg

DRUGS (1)
  1. TRIFLURIDINE 1 % OPHTHALMIC SOLUTION [Suspect]
     Indication: KERATITIS HERPETIC
     Dosage: (OPHTHALMIC)
     Route: 047
     Dates: start: 20100802

REACTIONS (11)
  - AURICULAR SWELLING [None]
  - CONDITION AGGRAVATED [None]
  - EYE DISCHARGE [None]
  - EYE PAIN [None]
  - HEART RATE INCREASED [None]
  - OCULAR HYPERAEMIA [None]
  - OEDEMA MOUTH [None]
  - SCAR [None]
  - SINUS DISORDER [None]
  - SINUS HEADACHE [None]
  - SWELLING [None]
